FAERS Safety Report 9789319 (Version 1)
Quarter: 2013Q4

REPORT INFORMATION
  Report Type: Spontaneous
  Country: IT (occurrence: IT)
  Receive Date: 20131231
  Receipt Date: 20131231
  Transmission Date: 20140711
  Serious: Yes (Other)
  Sender: FDA-Public Use
  Company Number: IT-WATSON-2013-23758

PATIENT
  Age: 10 Year
  Sex: Male
  Weight: 68 kg

DRUGS (1)
  1. RISPERIDONE (UNKNOWN) [Suspect]
     Indication: ABNORMAL BEHAVIOUR
     Dosage: 2 ML, DAILY
     Route: 048
     Dates: start: 20120603, end: 20120706

REACTIONS (2)
  - Drug ineffective [Recovered/Resolved]
  - Skin irritation [Recovered/Resolved]
